FAERS Safety Report 7392295-X (Version None)
Quarter: 2011Q2

REPORT INFORMATION
  Report Type: 
  Country: None (occurrence: None)
  Receive Date: 20110404
  Receipt Date: 20110330
  Transmission Date: 20111010
  Serious: Yes (Other)
  Sender: FDA-Public Use
  Company Number: SE-PFIZER INC-2010123425

PATIENT
  Age: 54 Year
  Sex: Male
  Weight: 91 kg

DRUGS (3)
  1. ALVEDON [Concomitant]
     Dosage: 500 MG, 3X/DAY
     Dates: start: 20080301
  2. ALLOPURINOL [Concomitant]
     Dosage: UNK
  3. SUTENT [Suspect]
     Indication: METASTATIC RENAL CELL CARCINOMA
     Dosage: 50 MG, 1X/DAY
     Route: 048
     Dates: start: 20080601

REACTIONS (3)
  - DIABETES MELLITUS [None]
  - OSTEOARTHRITIS [None]
  - OSTEONECROSIS [None]
